FAERS Safety Report 7414195-9 (Version None)
Quarter: 2011Q2

REPORT INFORMATION
  Report Type: 
  Country: None (occurrence: None)
  Receive Date: 20110414
  Receipt Date: 20110408
  Transmission Date: 20111010
  Serious: Yes (Other)
  Sender: FDA-Public Use
  Company Number: GB-PFIZER INC-2011078773

PATIENT
  Age: 62 Year
  Sex: Female
  Weight: 76.204 kg

DRUGS (1)
  1. DOXYCYCLINE HYCLATE [Suspect]
     Dosage: UNK
     Dates: start: 20110329

REACTIONS (1)
  - ALOPECIA [None]
